FAERS Safety Report 8343809-4 (Version None)
Quarter: 2012Q1

REPORT INFORMATION
  Report Type: 
  Country: None (occurrence: None)
  Receive Date: 20120330
  Receipt Date: 20111019
  Transmission Date: 20120608
  Serious: Yes (Hospitalization)
  Sender: FDA-Public Use
  Company Number: PHEH2011US07358

PATIENT
  Age: 87 Year
  Sex: Male

DRUGS (3)
  1. FOLIC ACID [Concomitant]
  2. ARICEPT [Concomitant]
  3. EXELON [Suspect]
     Dosage: 4.6 MG, DAILY, TRANSDERMAL, 2 PATCHES IN ONE MORNING, TRANSDERMSAL
     Route: 062

REACTIONS (7)
  - WEIGHT DECREASED [None]
  - DIARRHOEA [None]
  - ABDOMINAL DISCOMFORT [None]
  - DIZZINESS [None]
  - HEART RATE DECREASED [None]
  - TREMOR [None]
  - WRONG TECHNIQUE IN DRUG USAGE PROCESS [None]
